FAERS Safety Report 11127862 (Version 1)
Quarter: 2015Q2

REPORT INFORMATION
  Report Type: Report from Study
  Country: BE (occurrence: BE)
  Receive Date: 20150521
  Receipt Date: 20150521
  Transmission Date: 20150821
  Serious: Yes (Death, Other)
  Sender: FDA-Public Use
  Company Number: BE-BEH-2015051337

PATIENT
  Sex: Male

DRUGS (2)
  1. FIBRINOGEN [Suspect]
     Active Substance: FIBRINOGEN HUMAN
     Indication: HEPATIC HAEMORRHAGE
  2. FIBRINOGEN [Suspect]
     Active Substance: FIBRINOGEN HUMAN
     Indication: GRAFT HAEMORRHAGE

REACTIONS (1)
  - Drug ineffective for unapproved indication [Fatal]
